FAERS Safety Report 15973031 (Version 5)
Quarter: 2020Q4

REPORT INFORMATION
  Report Type: Spontaneous
  Country: US (occurrence: US)
  Receive Date: 20190216
  Receipt Date: 20201119
  Transmission Date: 20210113
  Serious: Yes (Other)
  Sender: FDA-Public Use
  Company Number: US-JNJFOC-20190141606

PATIENT
  Age: 54 Year
  Sex: Female
  Weight: 51.3 kg

DRUGS (12)
  1. LEXAPRO [Concomitant]
     Active Substance: ESCITALOPRAM OXALATE
     Route: 048
  2. COUMADIN [Concomitant]
     Active Substance: WARFARIN SODIUM
     Route: 048
  3. LOMOTIL [Concomitant]
     Active Substance: ATROPINE SULFATE\DIPHENOXYLATE HYDROCHLORIDE
     Indication: DIARRHOEA
     Dosage: TWO TABLETS THREE TIMES A DAY
     Route: 048
  4. GABAPENTIN. [Concomitant]
     Active Substance: GABAPENTIN
     Dosage: 300 ONE AT BED TIME
     Route: 048
  5. COBALAMIN [Concomitant]
     Active Substance: COBALAMIN
     Route: 065
  6. TRAZODONE [Concomitant]
     Active Substance: TRAZODONE HYDROCHLORIDE
     Dosage: ONE AT BEDTIME
     Route: 065
  7. PERCOCET [Concomitant]
     Active Substance: ACETAMINOPHEN\OXYCODONE HYDROCHLORIDE
     Indication: BACK PAIN
     Dosage: 5 MG/ 300 MG AS NEEDED FOR PAIN
     Route: 048
  8. IMIPRAMINE [Concomitant]
     Active Substance: IMIPRAMINE
     Dosage: ONE AT BEDTIME
     Route: 048
  9. CELECOXIB. [Concomitant]
     Active Substance: CELECOXIB
     Route: 048
  10. STELARA [Suspect]
     Active Substance: USTEKINUMAB
     Indication: CROHN^S DISEASE
     Route: 058
     Dates: start: 2013, end: 201808
  11. ZANTAC [Concomitant]
     Active Substance: RANITIDINE HYDROCHLORIDE
     Dosage: ONE TABLET THREE TIMES A DAY
     Route: 048
  12. CALCIUM [Concomitant]
     Active Substance: CALCIUM
     Route: 048

REACTIONS (8)
  - Crohn^s disease [Unknown]
  - Surgery [Unknown]
  - Protein deficiency [Not Recovered/Not Resolved]
  - Road traffic accident [Recovered/Resolved]
  - Iron deficiency [Not Recovered/Not Resolved]
  - Depression [Not Recovered/Not Resolved]
  - Product dose omission issue [Unknown]
  - Vitamin D deficiency [Not Recovered/Not Resolved]

NARRATIVE: CASE EVENT DATE: 201712
